FAERS Safety Report 13426641 (Version 2)
Quarter: 2017Q2

REPORT INFORMATION
  Report Type: Spontaneous
  Country: US (occurrence: US)
  Receive Date: 20170411
  Receipt Date: 20170602
  Transmission Date: 20170830
  Serious: No
  Sender: FDA-Public Use
  Company Number: US-ASTRAZENECA-2017SE36310

PATIENT
  Age: 896 Month
  Sex: Female
  Weight: 56.7 kg

DRUGS (3)
  1. PULMICORT FLEXHALER [Suspect]
     Active Substance: BUDESONIDE
     Indication: ASTHMA
     Dosage: 180 MCG 1 PUFF TWO TIMES A DAY
     Route: 055
     Dates: start: 201307
  2. LISINOPRIL. [Suspect]
     Active Substance: LISINOPRIL
     Indication: BLOOD PRESSURE ABNORMAL
     Dosage: 20-12.5 MG, DAILY
     Route: 048
     Dates: start: 2007
  3. PULMICORT FLEXHALER [Suspect]
     Active Substance: BUDESONIDE
     Indication: ASTHMA
     Dosage: 180 MCG 1 PUFF DAILY
     Route: 055
     Dates: start: 20170320, end: 20170405

REACTIONS (4)
  - Asthma [Unknown]
  - Intentional device misuse [Unknown]
  - Device issue [Unknown]
  - Emphysema [Unknown]

NARRATIVE: CASE EVENT DATE: 201307
